FAERS Safety Report 24552884 (Version 1)
Quarter: 2024Q4

REPORT INFORMATION
  Report Type: Spontaneous
  Country: CA (occurrence: CA)
  Receive Date: 20241027
  Receipt Date: 20241027
  Transmission Date: 20250114
  Serious: Yes (Hospitalization)
  Sender: HLS THERAPEUTICS
  Company Number: CA-HLS-202402545

PATIENT
  Age: 27 Year
  Sex: Female
  Weight: 68 kg

DRUGS (11)
  1. ARAZLO [Concomitant]
     Active Substance: TAZAROTENE
     Dosage: LOTION DOSAGE FORM
     Route: 065
  2. BENZOYL PEROXIDE [Concomitant]
     Active Substance: BENZOYL PEROXIDE
     Dosage: LOTION DOSAGE FORM
     Route: 065
  3. CETAPHIL [Concomitant]
     Dosage: LOTION DOSAGE FORM
     Route: 065
  4. CLOZARIL [Suspect]
     Active Substance: CLOZAPINE
     Indication: Schizoaffective disorder bipolar type
     Dosage: 1 EVERY 1 DAYS?AMOUNT: 275 MILLIGRAM?TABLETS DOSAGE FORM?THERAPY DURATION: 12 DAYS
     Route: 048
  5. COGENTIN [Concomitant]
     Active Substance: BENZTROPINE MESYLATE
     Dosage: NOT SPECIFIED DOSAGE FORM
     Route: 065
  6. FERROUS FUMARATE [Concomitant]
     Active Substance: FERROUS FUMARATE
     Dosage: NOT SPECIFIED DOSAGE FORM
     Route: 065
  7. LORAZEPAM [Concomitant]
     Active Substance: LORAZEPAM
     Dosage: NOT SPECIFIED DOSAGE FORM
     Route: 065
  8. LOXAPINE [Concomitant]
     Active Substance: LOXAPINE
     Dosage: NOT SPECIFIED DOSAGE FORM
     Route: 065
  9. MINERAL OIL [Concomitant]
     Active Substance: MINERAL OIL
     Dosage: LIQUID ORAL DOSAGE FORM
     Route: 065
  10. POLYETHYLENE GLYCOL [Concomitant]
     Active Substance: POLYETHYLENE GLYCOL
     Dosage: NOT SPECIFIED DOSAGE FORM
     Route: 065
  11. ZUCLOPENTHIXOL [Concomitant]
     Active Substance: ZUCLOPENTHIXOL
     Dosage: NOT SPECIFIED DOSAGE FORM
     Route: 065

REACTIONS (4)
  - C-reactive protein increased [Unknown]
  - Fibrin D dimer increased [Unknown]
  - Pyrexia [Unknown]
  - Tachycardia [Unknown]
